FAERS Safety Report 20566850 (Version 1)
Quarter: 2022Q1

REPORT INFORMATION
  Report Type: Spontaneous
  Country: US (occurrence: None)
  Receive Date: 20220307
  Receipt Date: 20220307
  Transmission Date: 20220423
  Serious: Yes (Other)
  Sender: FDA-Public Use
  Company Number: None

PATIENT
  Sex: Female

DRUGS (4)
  1. SUCCINYLCHOLINE [Suspect]
     Active Substance: SUCCINYLCHOLINE
     Dosage: OTHER FREQUENCY : ONCE;?
     Route: 040
     Dates: start: 20220217
  2. DEXAMETHASONE [Concomitant]
     Active Substance: DEXAMETHASONE
     Dates: start: 20220217, end: 20220217
  3. FENTANYL [Concomitant]
     Active Substance: FENTANYL
     Dates: start: 20220217, end: 20220217
  4. HALOPERIDOL [Concomitant]
     Active Substance: HALOPERIDOL
     Dates: start: 20220217, end: 20220217

REACTIONS (2)
  - Dyspnoea [None]
  - Suspected product quality issue [None]

NARRATIVE: CASE EVENT DATE: 20220217
